FAERS Safety Report 11253477 (Version 1)
Quarter: 2015Q3

REPORT INFORMATION
  Report Type: Spontaneous
  Country: US (occurrence: None)
  Receive Date: 20150708
  Receipt Date: 20150708
  Transmission Date: 20151125
  Serious: Yes (Other)
  Sender: FDA-Public Use
  Company Number: None

PATIENT
  Age: 59 Year
  Sex: Male
  Weight: 76 kg

DRUGS (1)
  1. IFOSFAMIDE. [Suspect]
     Active Substance: IFOSFAMIDE
     Indication: LYMPHOMA
     Dosage: 5000 MG/M2 (9350 MG)
     Route: 042
     Dates: start: 20150416, end: 20150417

REACTIONS (11)
  - Lethargy [None]
  - Toxic encephalopathy [None]
  - Haemodialysis [None]
  - Somnolence [None]
  - Restlessness [None]
  - Faecal incontinence [None]
  - Confusional state [None]
  - Agitation [None]
  - Urinary incontinence [None]
  - Depressed level of consciousness [None]
  - Moaning [None]

NARRATIVE: CASE EVENT DATE: 20150417
